FAERS Safety Report 9131315 (Version 2)
Quarter: 2013Q2

REPORT INFORMATION
  Report Type: Spontaneous
  Country: US (occurrence: US)
  Receive Date: 20130301
  Receipt Date: 20130411
  Transmission Date: 20140414
  Serious: Yes (Other)
  Sender: FDA-Public Use
  Company Number: US-JNJFOC-20130114714

PATIENT
  Age: 76 Year
  Sex: Female
  Weight: 74.84 kg

DRUGS (8)
  1. REMICADE [Suspect]
     Indication: PSORIASIS
     Dosage: 3RD INFUSION
     Route: 042
     Dates: start: 20121227
  2. REMICADE [Suspect]
     Indication: PSORIASIS
     Route: 042
     Dates: start: 20121112
  3. REMICADE [Suspect]
     Indication: PSORIASIS
     Route: 042
     Dates: start: 20121022
  4. CLONIDINE [Concomitant]
     Route: 065
  5. LOSARTAN [Concomitant]
     Route: 065
  6. DILTIAZEM [Concomitant]
     Route: 065
  7. SORIATANE [Concomitant]
     Indication: PSORIASIS
     Route: 065
  8. DERMA-SMOOTHE-FS [Concomitant]
     Route: 065

REACTIONS (2)
  - Thrombophlebitis superficial [Recovered/Resolved]
  - Drug ineffective [Unknown]
